FAERS Safety Report 7792205-7 (Version None)
Quarter: 2011Q4

REPORT INFORMATION
  Report Type: 
  Country: None (occurrence: None)
  Receive Date: 20111003
  Receipt Date: 20111003
  Transmission Date: 20120403
  Serious: Yes (Other)
  Sender: FDA-Public Use
  Company Number: None

PATIENT
  Sex: Female
  Weight: 70.306 kg

DRUGS (3)
  1. CYMBALTA [Suspect]
     Indication: PAIN
     Dates: start: 20100501, end: 20110920
  2. CYMBALTA [Suspect]
     Indication: INTERVERTEBRAL DISC PROTRUSION
     Dates: start: 20100501, end: 20110920
  3. LYRICA [Concomitant]

REACTIONS (1)
  - DRUG WITHDRAWAL SYNDROME [None]
